FAERS Safety Report 16998402 (Version 1)
Quarter: 2019Q4

REPORT INFORMATION
  Report Type: Spontaneous
  Country: US (occurrence: US)
  Receive Date: 20190925
  Receipt Date: 20190925
  Transmission Date: 20200122
  Serious: Yes (Hospitalization)
  Sender: FDA-Public Use
  Company Number: None

PATIENT
  Age: 60 Year
  Sex: Female

DRUGS (5)
  1. PROMETH/COD [Concomitant]
  2. HUMIRA [Concomitant]
     Active Substance: ADALIMUMAB
  3. PHENTERMINE. [Concomitant]
     Active Substance: PHENTERMINE
  4. ENBREL [Suspect]
     Active Substance: ETANERCEPT
     Indication: RHEUMATOID ARTHRITIS
     Route: 058
     Dates: start: 201909, end: 201909
  5. PREDNISONE. [Concomitant]
     Active Substance: PREDNISONE

REACTIONS (2)
  - Pain [None]
  - Product dose omission [None]

NARRATIVE: CASE EVENT DATE: 20190922
